FAERS Safety Report 8504563-6 (Version None)
Quarter: 2012Q3

REPORT INFORMATION
  Report Type: 
  Country: None (occurrence: None)
  Receive Date: 20120711
  Receipt Date: 20120710
  Transmission Date: 20120928
  Serious: Yes (Death)
  Sender: FDA-Public Use
  Company Number: US-ROCHE-1085794

PATIENT
  Sex: Male

DRUGS (2)
  1. TARCEVA [Suspect]
     Indication: BILE DUCT CANCER
     Route: 048
     Dates: start: 20120507, end: 20120707
  2. AVASTIN [Suspect]
     Indication: BILE DUCT CANCER
     Route: 042
     Dates: start: 20120628, end: 20120628

REACTIONS (1)
  - BILE DUCT CANCER [None]
